FAERS Safety Report 9268863 (Version 2)
Quarter: 2015Q1

REPORT INFORMATION
  Report Type: Spontaneous
  Country: PL (occurrence: PL)
  Receive Date: 20130503
  Receipt Date: 20150109
  Transmission Date: 20150721
  Serious: Yes (Hospitalization)
  Sender: FDA-Public Use
  Company Number: PHHY2013PL042621

PATIENT
  Age: 25 Year
  Sex: Female

DRUGS (1)
  1. LAMOTRIGINE. [Suspect]
     Active Substance: LAMOTRIGINE
     Indication: EPILEPSY

REACTIONS (12)
  - Rash papular [Recovered/Resolved]
  - Chills [Recovered/Resolved]
  - Drug reaction with eosinophilia and systemic symptoms [Recovered/Resolved]
  - Face oedema [Recovered/Resolved]
  - Pyrexia [Recovered/Resolved]
  - Pruritus [Recovered/Resolved]
  - Skin burning sensation [Recovered/Resolved]
  - Skin lesion [Recovering/Resolving]
  - Rash [Unknown]
  - Oedema peripheral [Recovered/Resolved]
  - Generalised erythema [Recovered/Resolved]
  - Rash maculo-papular [Recovered/Resolved]
